FAERS Safety Report 6258410-6 (Version None)
Quarter: 2009Q3

REPORT INFORMATION
  Report Type: 
  Country: None (occurrence: None)
  Receive Date: 20090707
  Receipt Date: 20090625
  Transmission Date: 20100115
  Serious: Yes (Disabling)
  Sender: FDA-Public Use
  Company Number: JP-PFIZER INC-2009233948

PATIENT
  Age: 67 Year

DRUGS (3)
  1. ZITHROMAX [Suspect]
     Indication: INFECTION
     Dosage: UNK
     Route: 048
     Dates: start: 20090415, end: 20090417
  2. DEXTROMETHORPHAN HYDROBROMIDE [Concomitant]
     Dosage: UNK
     Route: 048
     Dates: start: 20090415, end: 20090420
  3. AMBROXOL HYDROCHLORIDE [Concomitant]
     Dosage: UNK
     Route: 048
     Dates: start: 20090415, end: 20090420

REACTIONS (1)
  - DYSGEUSIA [None]
